FAERS Safety Report 8495149-0 (Version None)
Quarter: 2012Q3

REPORT INFORMATION
  Report Type: 
  Country: None (occurrence: None)
  Receive Date: 20120702
  Receipt Date: 20120702
  Transmission Date: 20120928
  Serious: Yes (Other)
  Sender: FDA-Public Use
  Company Number: None

PATIENT
  Sex: Female

DRUGS (5)
  1. BIRTH CONTROL [Concomitant]
  2. TYLENOL W/ CODEINE NO. 3 [Concomitant]
  3. DOXYCYCLINE [Suspect]
     Indication: DENTAL OPERATION
     Dosage: 100MG ONCE A DAY PO
     Route: 048
  4. IBPROPHEM [Concomitant]
  5. BLOOD PRESSURE MEDS [Concomitant]

REACTIONS (3)
  - DIZZINESS [None]
  - NAUSEA [None]
  - HEADACHE [None]
